FAERS Safety Report 12978496 (Version 1)
Quarter: 2016Q4

REPORT INFORMATION
  Report Type: Spontaneous
  Country: US (occurrence: US)
  Receive Date: 20161127
  Receipt Date: 20161127
  Transmission Date: 20170207
  Serious: Yes (Other)
  Sender: FDA-Public Use
  Company Number: None

PATIENT
  Age: 48 Year
  Sex: Female
  Weight: 111.6 kg

DRUGS (1)
  1. METFORMIN [Suspect]
     Active Substance: METFORMIN HYDROCHLORIDE
     Indication: GLYCOSYLATED HAEMOGLOBIN INCREASED
     Dosage: QUANTITY:1 TABLET(S); ORAL?
     Route: 048
     Dates: start: 20160130, end: 20161119

REACTIONS (5)
  - Joint swelling [None]
  - Gait disturbance [None]
  - Dysstasia [None]
  - Arthritis [None]
  - Musculoskeletal pain [None]

NARRATIVE: CASE EVENT DATE: 20160606
